FAERS Safety Report 7560231-9 (Version None)
Quarter: 2011Q2

REPORT INFORMATION
  Report Type: 
  Country: None (occurrence: None)
  Receive Date: 20110621
  Receipt Date: 20110610
  Transmission Date: 20111010
  Serious: Yes (Other)
  Sender: FDA-Public Use
  Company Number: JP-ASTRAZENECA-2011SE36720

PATIENT
  Age: 90 Year
  Sex: Female

DRUGS (2)
  1. MEROPENEM [Suspect]
     Indication: CHOLECYSTITIS
     Route: 042
     Dates: start: 20110502, end: 20110517
  2. WYSTAL [Concomitant]
     Route: 042
     Dates: start: 20110418

REACTIONS (1)
  - INTERSTITIAL LUNG DISEASE [None]
